FAERS Safety Report 10369730 (Version 2)
Quarter: 2014Q4

REPORT INFORMATION
  Report Type: Spontaneous
  Country: IL (occurrence: IL)
  Receive Date: 20140807
  Receipt Date: 20141003
  Transmission Date: 20150528
  Serious: Yes (Other)
  Sender: FDA-Public Use
  Company Number: IL-ABBVIE-14P-082-1269560-00

PATIENT
  Age: 35 Year
  Sex: Female

DRUGS (2)
  1. DEPALEPT CHRONO [Suspect]
     Active Substance: VALPROIC ACID
     Indication: EPILEPSY
  2. DEPALEPT CHRONO [Suspect]
     Active Substance: VALPROIC ACID

REACTIONS (2)
  - Epilepsy [Recovered/Resolved]
  - Feeling abnormal [Recovered/Resolved]

NARRATIVE: CASE EVENT DATE: 201407
